FAERS Safety Report 12983901 (Version 2)
Quarter: 2016Q4

REPORT INFORMATION
  Report Type: Spontaneous
  Country: JP (occurrence: JP)
  Receive Date: 20161129
  Receipt Date: 20161227
  Transmission Date: 20170207
  Serious: Yes (Death, Disabling)
  Sender: FDA-Public Use
  Company Number: JP-JNJFOC-20161128589

PATIENT
  Age: 79 Year
  Sex: Male

DRUGS (29)
  1. XARELTO [Suspect]
     Active Substance: RIVAROXABAN
     Indication: EMBOLISM VENOUS
     Route: 048
     Dates: start: 20160615, end: 20160705
  2. OMEPRAZOLE. [Concomitant]
     Active Substance: OMEPRAZOLE
     Indication: PNEUMONIA ASPIRATION
     Route: 041
     Dates: start: 201309
  3. DOPS [Concomitant]
     Active Substance: DROXIDOPA
     Route: 048
     Dates: start: 201606, end: 201609
  4. NEPRO [Concomitant]
     Active Substance: DIETARY SUPPLEMENT
     Route: 062
     Dates: start: 201606, end: 201609
  5. MUCODYNE [Concomitant]
     Active Substance: CARBOCYSTEINE
     Route: 048
     Dates: start: 201606, end: 201609
  6. PIPERACILLIN AND TAZOBACTAM [Concomitant]
     Active Substance: PIPERACILLIN SODIUM\TAZOBACTAM SODIUM
     Route: 065
     Dates: start: 201606, end: 201608
  7. RENIVACE [Concomitant]
     Active Substance: ENALAPRIL
     Route: 048
     Dates: start: 201606, end: 201609
  8. LEVOFLOXACIN. [Concomitant]
     Active Substance: LEVOFLOXACIN
     Route: 048
     Dates: start: 201606, end: 201608
  9. CEFEPIME HYDROCHLORIDE. [Concomitant]
     Active Substance: CEFEPIME HYDROCHLORIDE
     Route: 041
     Dates: start: 201606, end: 201608
  10. LASIX [Suspect]
     Active Substance: FUROSEMIDE
     Indication: PNEUMONIA ASPIRATION
     Route: 042
     Dates: start: 20160906, end: 20160912
  11. DOPAMINE HYDROCHLORIDE. [Concomitant]
     Active Substance: DOPAMINE HYDROCHLORIDE
     Indication: PNEUMONIA ASPIRATION
     Route: 041
     Dates: start: 201309
  12. NEODOPASTON [Concomitant]
     Active Substance: CARBIDOPA\LEVODOPA
     Route: 048
     Dates: start: 201606, end: 201609
  13. AMPICILLIN+SULBACTAM [Concomitant]
     Active Substance: AMPICILLIN SODIUM\SULBACTAM SODIUM
     Route: 065
     Dates: start: 201606, end: 201608
  14. SITAFLOXACIN [Concomitant]
     Active Substance: SITAFLOXACIN
     Route: 048
     Dates: start: 201606, end: 201608
  15. MEROPENEM. [Concomitant]
     Active Substance: MEROPENEM
     Indication: PNEUMONIA ASPIRATION
     Route: 041
     Dates: start: 201309
  16. COMTAN [Concomitant]
     Active Substance: ENTACAPONE
     Route: 048
     Dates: start: 201606, end: 201609
  17. POTASSIUM GLUCONATE [Concomitant]
     Active Substance: POTASSIUM GLUCONATE
     Route: 048
     Dates: start: 201606, end: 201609
  18. L CARTIN [Concomitant]
     Active Substance: LEVOCARNITINE HYDROCHLORIDE
     Route: 065
     Dates: start: 201606, end: 201609
  19. CEFMETAZOLE SODIUM [Concomitant]
     Active Substance: CEFMETAZOLE SODIUM
     Route: 065
     Dates: start: 201606, end: 201608
  20. SYMMETREL [Concomitant]
     Active Substance: AMANTADINE HYDROCHLORIDE
     Route: 048
     Dates: start: 201606, end: 201609
  21. VANCOMYCIN HYDROCHLORIDE. [Concomitant]
     Active Substance: VANCOMYCIN HYDROCHLORIDE
     Route: 065
     Dates: start: 201606, end: 201608
  22. HANGEKOBOKUTO [Concomitant]
     Route: 048
     Dates: start: 201606, end: 201609
  23. AMLODIPINE [Concomitant]
     Active Substance: AMLODIPINE BESYLATE
     Route: 048
     Dates: start: 201606, end: 201609
  24. XARELTO [Suspect]
     Active Substance: RIVAROXABAN
     Indication: EMBOLISM VENOUS
     Route: 048
     Dates: start: 20161005, end: 20161011
  25. XARELTO [Suspect]
     Active Substance: RIVAROXABAN
     Indication: EMBOLISM VENOUS
     Route: 048
     Dates: start: 20160913, end: 20160930
  26. DALTEPARIN SODIUM [Concomitant]
     Active Substance: DALTEPARIN SODIUM
     Indication: PNEUMONIA ASPIRATION
     Route: 041
     Dates: start: 201309
  27. FRAGMIN [Concomitant]
     Active Substance: DALTEPARIN SODIUM
     Indication: PNEUMONIA ASPIRATION
     Route: 041
     Dates: start: 201309
  28. DIPRIVAN [Concomitant]
     Active Substance: PROPOFOL
     Indication: PNEUMONIA ASPIRATION
     Route: 041
     Dates: start: 201309
  29. LANSOPRAZOLE. [Concomitant]
     Active Substance: LANSOPRAZOLE
     Route: 048
     Dates: start: 201606, end: 201609

REACTIONS (2)
  - Pneumonia [Fatal]
  - Drug-induced liver injury [Recovered/Resolved with Sequelae]

NARRATIVE: CASE EVENT DATE: 20161011
